FAERS Safety Report 15402813 (Version 1)
Quarter: 2018Q3

REPORT INFORMATION
  Report Type: Spontaneous
  Country: US (occurrence: US)
  Receive Date: 20180917
  Receipt Date: 20180917
  Transmission Date: 20181010
  Serious: Yes (Other)
  Sender: FDA-Public Use
  Company Number: None

PATIENT
  Age: 76 Year
  Sex: Female
  Weight: 71.1 kg

DRUGS (20)
  1. ALVESCO [Concomitant]
     Active Substance: CICLESONIDE
  2. TRIAMCINOLONE [Concomitant]
     Active Substance: TRIAMCINOLONE
  3. MAGNESIUM [Concomitant]
     Active Substance: MAGNESIUM
  4. ZYRTEC?D ALLERGY AND CONGESTION [Concomitant]
     Active Substance: CETIRIZINE HYDROCHLORIDE\PSEUDOEPHEDRINE HYDROCHLORIDE
  5. FLONASE [Concomitant]
     Active Substance: FLUTICASONE PROPIONATE
  6. GLUCOSAMINE CHONDROITIN [Concomitant]
     Active Substance: CHONDROITIN SULFATE (BOVINE)\GLUCOSAMINE HYDROCHLORIDE
  7. ASPERCREME NOS [Concomitant]
     Active Substance: MENTHOL\TROLAMINE SALICYLATE
  8. MULTIVITAMIN [Concomitant]
     Active Substance: VITAMINS
  9. FUROSEMIDE. [Concomitant]
     Active Substance: FUROSEMIDE
  10. LUTEIN [Concomitant]
     Active Substance: LUTEIN
  11. VITAMIN D [Concomitant]
     Active Substance: CHOLECALCIFEROL
  12. PROPRANOLOL [Concomitant]
     Active Substance: PROPRANOLOL HYDROCHLORIDE
  13. FASLODEX [Concomitant]
     Active Substance: FULVESTRANT
  14. EXEMESTANE. [Concomitant]
     Active Substance: EXEMESTANE
  15. SYSTANE (HYPROMELLOSE 2910 (4000 MPA.S)) [Concomitant]
     Active Substance: HYPROMELLOSE 2910 (4000 MPA.S)
  16. IBRANCE [Suspect]
     Active Substance: PALBOCICLIB
     Indication: BREAST CANCER
     Route: 048
     Dates: start: 20180621
  17. ASPIRIN. [Concomitant]
     Active Substance: ASPIRIN
  18. IRBESARTAN. [Concomitant]
     Active Substance: IRBESARTAN
  19. SIMVASTATIN. [Concomitant]
     Active Substance: SIMVASTATIN
  20. MIRALAX [Concomitant]
     Active Substance: POLYETHYLENE GLYCOL 3350

REACTIONS (7)
  - Constipation [None]
  - Headache [None]
  - Decreased appetite [None]
  - Fatigue [None]
  - Cough [None]
  - Myalgia [None]
  - Stomatitis [None]
